FAERS Safety Report 22653648 (Version 1)
Quarter: 2023Q2

REPORT INFORMATION
  Report Type: Spontaneous
  Country: BG (occurrence: None)
  Receive Date: 20230629
  Receipt Date: 20230629
  Transmission Date: 20230722
  Serious: Yes (Death, Hospitalization)
  Sender: FDA-Public Use
  Company Number: BG-ROCHE-3373852

PATIENT
  Age: 80 Year
  Sex: Male

DRUGS (1)
  1. TECENTRIQ [Suspect]
     Active Substance: ATEZOLIZUMAB
     Indication: Non-small cell lung cancer metastatic
     Route: 041
     Dates: start: 20220629, end: 20221022

REACTIONS (5)
  - Cardiac arrest [Fatal]
  - Chest pain [Unknown]
  - Chest discomfort [Unknown]
  - Discomfort [Unknown]
  - Arrhythmia [Unknown]

NARRATIVE: CASE EVENT DATE: 20221021
